FAERS Safety Report 23852364 (Version 4)
Quarter: 2024Q3

REPORT INFORMATION
  Report Type: Report from Study
  Country: KR (occurrence: KR)
  Receive Date: 20240514
  Receipt Date: 20240913
  Transmission Date: 20241016
  Serious: Yes (Death)
  Sender: ABBVIE
  Company Number: KR-PFIZER INC-PV202400061032

PATIENT
  Age: 62 Year
  Sex: Male
  Weight: 69 kg

DRUGS (9)
  1. AVIBACTAM SODIUM\CEFTAZIDIME [Suspect]
     Active Substance: AVIBACTAM SODIUM\CEFTAZIDIME
     Indication: Pneumonia
     Dosage: TIME INTERVAL: 0.33333333 DAYS: 2.5, VIAL, THREE TIMES A DAY (TID)
     Route: 042
     Dates: start: 20240507, end: 20240507
  2. METHYSOL [Concomitant]
     Indication: Squamous cell carcinoma of lung
     Dosage: 125 MG
     Route: 042
     Dates: start: 20240425, end: 20240507
  3. METHYSOL [Concomitant]
     Indication: Squamous cell carcinoma of lung
  4. XARELTO [Concomitant]
     Active Substance: RIVAROXABAN
     Indication: Angina pectoris
     Dosage: 15 MG
     Route: 048
     Dates: start: 20240502, end: 20240507
  5. PROPACETAMOL HYDROCHLORIDE [Concomitant]
     Active Substance: PROPACETAMOL HYDROCHLORIDE
     Indication: Pyrexia
     Dosage: UNK
     Route: 042
     Dates: start: 20240425, end: 20240509
  6. MYCAMINE [Concomitant]
     Active Substance: MICAFUNGIN SODIUM
     Indication: Squamous cell carcinoma of lung
     Dosage: 50 MG
     Route: 042
     Dates: start: 20240506, end: 20240507
  7. SULFAMETHOXAZOLE\TRIMETHOPRIM [Concomitant]
     Active Substance: SULFAMETHOXAZOLE\TRIMETHOPRIM
     Indication: Pneumonia
     Dosage: UNK
     Route: 048
     Dates: start: 20240425, end: 20240509
  8. TAPOCIN [Concomitant]
     Indication: Pneumonia
     Dosage: 400 MG
     Route: 042
     Dates: start: 20240412, end: 20240509
  9. ADIKAN [Concomitant]
     Indication: Pneumonia
     Dosage: 500 MG/ 2 ML
     Route: 042
     Dates: start: 20240503, end: 20240507

REACTIONS (2)
  - Neoplasm progression [Fatal]
  - Pneumonia [Fatal]

NARRATIVE: CASE EVENT DATE: 20240509
